FAERS Safety Report 7378717-9 (Version None)
Quarter: 2011Q1

REPORT INFORMATION
  Report Type: 
  Country: None (occurrence: None)
  Receive Date: 20110328
  Receipt Date: 20110302
  Transmission Date: 20110831
  Serious: No
  Sender: FDA-Public Use
  Company Number: US-B.I. PHARMACEUTICALS,INC./RIDGEFIELD-2011-BP-01306BP

PATIENT
  Sex: Female

DRUGS (3)
  1. TRIAMTERENE [Concomitant]
     Dosage: 37.5 MG
  2. PRADAXA [Suspect]
     Indication: ATRIAL FIBRILLATION
     Dosage: 150 MG
     Route: 048
     Dates: start: 20110101, end: 20110101
  3. CARTIA XT [Concomitant]
     Indication: ATRIAL FIBRILLATION
     Dosage: 300 MG

REACTIONS (5)
  - DIZZINESS [None]
  - DYSPNOEA [None]
  - TONGUE DISCOLOURATION [None]
  - SWOLLEN TONGUE [None]
  - GLOSSODYNIA [None]
